FAERS Safety Report 8769893 (Version 1)
Quarter: 2012Q4

REPORT INFORMATION
  Report Type: 
  Country: US (occurrence: US)
  Receive Date: 20120906
  Receipt Date: 20120906
  Transmission Date: 20130627
  Serious: Yes (Other)
  Sender: FDA-Public Use
  Company Number: US-ELI_LILLY_AND_COMPANY-US201208008839

PATIENT
  Sex: Male

DRUGS (3)
  1. HUMULIN NPH [Suspect]
     Indication: DIABETES MELLITUS
     Dosage: 16 u, each morning
     Dates: start: 2006
  2. HUMULIN NPH [Suspect]
     Dosage: 18 u, each evening
     Dates: start: 2006
  3. HUMULIN REGULAR [Suspect]
     Indication: DIABETES MELLITUS
     Dosage: UNK, prn
     Dates: start: 2006

REACTIONS (6)
  - Diabetes mellitus inadequate control [Recovered/Resolved]
  - Blood glucose increased [Unknown]
  - Expired drug administered [Unknown]
  - Dementia [Not Recovered/Not Resolved]
  - Cognitive disorder [Unknown]
  - Diarrhoea [Unknown]
